FAERS Safety Report 7025125-6 (Version None)
Quarter: 2010Q4

REPORT INFORMATION
  Report Type: 
  Country: None (occurrence: None)
  Receive Date: 20101001
  Receipt Date: 20100924
  Transmission Date: 20110411
  Serious: Yes (Hospitalization)
  Sender: FDA-Public Use
  Company Number: CA-ABBOTT-10P-028-0624924-00

PATIENT
  Sex: Female
  Weight: 66.738 kg

DRUGS (5)
  1. HUMIRA [Suspect]
     Indication: PSORIASIS
     Route: 058
     Dates: start: 20091111, end: 20091209
  2. LOPROX [Concomitant]
     Indication: PSORIASIS
     Dates: start: 20071109
  3. TIAMOL [Concomitant]
     Indication: PSORIASIS
     Dates: start: 20071109
  4. BETNOVATE [Concomitant]
     Indication: PSORIASIS
     Dates: start: 19980528
  5. HUMIRA [Concomitant]
     Indication: PSORIASIS
     Dates: start: 20090529

REACTIONS (3)
  - BLOOD GLUCOSE INCREASED [None]
  - CELLULITIS [None]
  - TYPE 2 DIABETES MELLITUS [None]
